FAERS Safety Report 5596962-X (Version None)
Quarter: 2007Q4

REPORT INFORMATION
  Report Type: 
  Country: None (occurrence: None)
  Receive Date: 20071221
  Receipt Date: 20071011
  Transmission Date: 20080405
  Serious: No
  Sender: FDA-Public Use
  Company Number: SPV1-2007-04498

PATIENT
  Age: 24 Year
  Sex: Male
  Weight: 79.4 kg

DRUGS (1)
  1. VYVANSE [Suspect]
     Indication: ATTENTION DEFICIT/HYPERACTIVITY DISORDER
     Dosage: 30 MG, 1X/DAY; QD, ORAL
     Route: 048
     Dates: start: 20071005, end: 20071011

REACTIONS (8)
  - ANOREXIA [None]
  - DIZZINESS [None]
  - DRY MOUTH [None]
  - HYPERHIDROSIS [None]
  - INSOMNIA [None]
  - NAUSEA [None]
  - OFF LABEL USE [None]
  - TREMOR [None]
